FAERS Safety Report 8561958-2 (Version None)
Quarter: 2012Q3

REPORT INFORMATION
  Report Type: 
  Country: None (occurrence: None)
  Receive Date: 20120802
  Receipt Date: 20120727
  Transmission Date: 20120928
  Serious: Yes (Other)
  Sender: FDA-Public Use
  Company Number: GB-BAXTER-2012BAX012993

PATIENT
  Age: 64 Year
  Sex: Male
  Weight: 90 kg

DRUGS (4)
  1. METRONIDAZOLE [Suspect]
     Route: 042
  2. CEFUROXIME [Suspect]
     Route: 042
  3. METRONIDAZOLE [Suspect]
     Route: 042
     Dates: start: 20120629, end: 20120630
  4. AMOXICILLIN AND CLAVULANATE POTASSIUM [Suspect]
     Route: 042
     Dates: start: 20120629, end: 20120630

REACTIONS (1)
  - RENAL FAILURE ACUTE [None]
